FAERS Safety Report 19141137 (Version 2)
Quarter: 2021Q3

REPORT INFORMATION
  Report Type: Report from Study
  Country: None (occurrence: US)
  Receive Date: 20210415
  Receipt Date: 20210919
  Transmission Date: 20211014
  Serious: Yes (Other)
  Sender: FDA-Public Use
  Company Number: US-ABBVIE-21K-163-3852655-00

PATIENT
  Sex: Female

DRUGS (1)
  1. HUMIRA [Suspect]
     Active Substance: ADALIMUMAB
     Indication: CROHN^S DISEASE
     Dosage: CITRATE FREE
     Route: 058

REACTIONS (8)
  - Fatigue [Not Recovered/Not Resolved]
  - Intermittent claudication [Not Recovered/Not Resolved]
  - Gait inability [Not Recovered/Not Resolved]
  - Exostosis [Unknown]
  - Cerebrovascular accident [Unknown]
  - Flatback syndrome [Unknown]
  - Intervertebral disc protrusion [Unknown]
  - Nerve compression [Unknown]
